FAERS Safety Report 14511454 (Version 1)
Quarter: 2018Q1

REPORT INFORMATION
  Report Type: Spontaneous
  Country: US (occurrence: US)
  Receive Date: 20180209
  Receipt Date: 20180209
  Transmission Date: 20180509
  Serious: No
  Sender: FDA-Public Use
  Company Number: US-ENDO PHARMACEUTICALS INC-2017-000897

PATIENT
  Sex: Male
  Weight: 88.44 kg

DRUGS (5)
  1. FORTESTA [Suspect]
     Active Substance: TESTOSTERONE
     Indication: BLOOD TESTOSTERONE DECREASED
     Dosage: UNK, 2 OR 3 PUMPS ON ONE LEG, SKIPPED A DAY, THEN 2 TO 3 PUMPS ON OTHER LEG IN MORNING, NOON OR HS
     Route: 061
     Dates: start: 2015
  2. TAMSULOSIN HCL [Concomitant]
     Active Substance: TAMSULOSIN HYDROCHLORIDE
     Indication: BENIGN PROSTATIC HYPERPLASIA
  3. ELIQUIS [Concomitant]
     Active Substance: APIXABAN
     Indication: ANTICOAGULANT THERAPY
  4. FORTESTA [Suspect]
     Active Substance: TESTOSTERONE
     Dosage: UNK, 2 PUMPS ON EACH LEG
     Route: 061
     Dates: start: 2015
  5. NORVASC [Concomitant]
     Active Substance: AMLODIPINE BESYLATE
     Indication: HYPERTENSION

REACTIONS (6)
  - Inappropriate schedule of drug administration [Recovered/Resolved]
  - Application site urticaria [Recovered/Resolved]
  - Intentional underdose [Unknown]
  - Drug dose omission [Recovered/Resolved]
  - Application site erythema [Recovering/Resolving]
  - Application site pruritus [Not Recovered/Not Resolved]

NARRATIVE: CASE EVENT DATE: 2015
